FAERS Safety Report 24043651 (Version 2)
Quarter: 2024Q3

REPORT INFORMATION
  Report Type: Spontaneous
  Country: US (occurrence: US)
  Receive Date: 20240703
  Receipt Date: 20240718
  Transmission Date: 20241017
  Serious: No
  Sender: BIOGEN
  Company Number: US-BIOGEN-2024BI01261589

PATIENT
  Sex: Female

DRUGS (4)
  1. VUMERITY [Suspect]
     Active Substance: DIROXIMEL FUMARATE
     Indication: Multiple sclerosis
     Route: 050
     Dates: start: 20210720
  2. PANTOPRAZOLE SODIUM [Concomitant]
     Active Substance: PANTOPRAZOLE SODIUM
     Route: 050
  3. MECLIZINE 25 [Concomitant]
     Route: 050
  4. TYLENOL EXTRA STRENGTH [Concomitant]
     Active Substance: ACETAMINOPHEN
     Route: 050

REACTIONS (4)
  - Migraine [Not Recovered/Not Resolved]
  - Viral infection [Unknown]
  - Multiple sclerosis relapse [Unknown]
  - Cataract [Unknown]

NARRATIVE: CASE EVENT DATE: 20240101
